FAERS Safety Report 6183415-3 (Version None)
Quarter: 2009Q2

REPORT INFORMATION
  Report Type: 
  Country: None (occurrence: None)
  Receive Date: 20090507
  Receipt Date: 20090501
  Transmission Date: 20091009
  Serious: Yes (Hospitalization)
  Sender: FDA-Public Use
  Company Number: CG-MERCK-0905USA00451

PATIENT
  Age: 60 Year
  Sex: Male

DRUGS (1)
  1. STROMECTOL [Suspect]
     Indication: ONCHOCERCIASIS
     Route: 048
     Dates: start: 20081219, end: 20081219

REACTIONS (4)
  - COMA [None]
  - NUCHAL RIGIDITY [None]
  - PYREXIA [None]
  - URINARY INCONTINENCE [None]
